FAERS Safety Report 15947740 (Version 1)
Quarter: 2019Q1

REPORT INFORMATION
  Report Type: Spontaneous
  Country: CN (occurrence: CN)
  Receive Date: 20190211
  Receipt Date: 20190211
  Transmission Date: 20190417
  Serious: Yes (Other)
  Sender: FDA-Public Use
  Company Number: CN-HQ SPECIALTY-CN-2019INT000023

PATIENT

DRUGS (3)
  1. 5-FLUOROURACIL                     /00098801/ [Suspect]
     Active Substance: FLUOROURACIL
     Indication: NASOPHARYNGEAL CANCER
     Dosage: 2500 MG/M2, (2 CYCLES OF IC: INTRAVENOUS INFUSION OVER 120 HOURS EVERY 21 DAYS)
     Route: 042
  2. RADIOTHERAPY [Suspect]
     Active Substance: RADIATION THERAPY
     Indication: NASOPHARYNGEAL CANCER
     Dosage: 1 FRACTION DAILY, FOR 5 DAYS PER WEEK
     Route: 065
  3. CISPLATIN. [Suspect]
     Active Substance: CISPLATIN
     Indication: NASOPHARYNGEAL CANCER
     Dosage: 25 MG/M2, DAYS 1 TO 3 (2 CYCLES OF IC: INTRAVENOUS INFUSION OVER 120 HOURS EVERY 21 DAYS)
     Route: 042

REACTIONS (1)
  - Cranial nerve disorder [Unknown]
